FAERS Safety Report 7634954-7 (Version None)
Quarter: 2011Q3

REPORT INFORMATION
  Report Type: 
  Country: None (occurrence: None)
  Receive Date: 20110726
  Receipt Date: 20110714
  Transmission Date: 20111222
  Serious: Yes (Hospitalization, Other)
  Sender: FDA-Public Use
  Company Number: US-BAYER-201016085NA

PATIENT
  Age: 32 Year
  Sex: Female
  Weight: 90.703 kg

DRUGS (14)
  1. DIAZEPAM [Concomitant]
     Dosage: 10 MG, UNK
  2. METOCLOPRAM [Concomitant]
     Dosage: 5 MG, UNK
  3. AZITHROMYCIN [Concomitant]
  4. XPECT [Concomitant]
  5. PROZAC [Concomitant]
  6. PROMETHAZINE [Concomitant]
     Dosage: 25 MG, UNK
  7. NASONEX [Concomitant]
  8. ALPRAZOLAM [Concomitant]
     Dosage: 0.5 MG, UNK
  9. YAZ [Suspect]
     Indication: PREMENSTRUAL SYNDROME
     Dosage: SAMPLES WERE RECEIVED FROM 2001-2008
     Route: 048
     Dates: start: 20000101, end: 20080101
  10. EFFEXOR XR [Concomitant]
  11. REGLAN [Concomitant]
  12. FLUOXETINE [Concomitant]
     Dosage: 20 MG, UNK
  13. YAZ [Suspect]
     Indication: CONTRACEPTION
  14. TEMAZEPAM [Concomitant]
     Dosage: 30 MG, UNK

REACTIONS (4)
  - MENTAL DISORDER [None]
  - CHOLECYSTITIS CHRONIC [None]
  - GALLBLADDER DISORDER [None]
  - BILIARY DYSKINESIA [None]
